FAERS Safety Report 6431038-0 (Version None)
Quarter: 2009Q4

REPORT INFORMATION
  Report Type: 
  Country: None (occurrence: None)
  Receive Date: 20091106
  Receipt Date: 20091102
  Transmission Date: 20100525
  Serious: Yes (Other)
  Sender: FDA-Public Use
  Company Number: US-TEVA-214158USA

PATIENT
  Age: 11 Year
  Sex: Female

DRUGS (4)
  1. MERCAPTOPURINE [Suspect]
     Indication: CROHN'S DISEASE
     Route: 048
     Dates: start: 20060101, end: 20081201
  2. CLONIDINE [Concomitant]
     Indication: INSOMNIA
     Route: 048
  3. MESALAZINE [Concomitant]
     Indication: CROHN'S DISEASE
     Route: 048
  4. BUDESONIDE [Concomitant]
     Indication: CROHN'S DISEASE
     Route: 048

REACTIONS (11)
  - BACTERIAL INFECTION [None]
  - DEPRESSION [None]
  - DRUG ADMINISTRATION ERROR [None]
  - DYSKINESIA [None]
  - IMMUNODEFICIENCY COMMON VARIABLE [None]
  - IMPAIRED HEALING [None]
  - INFECTION [None]
  - INSOMNIA [None]
  - OFF LABEL USE [None]
  - SKIN PAPILLOMA [None]
  - VISION BLURRED [None]
